FAERS Safety Report 7097735-1 (Version None)
Quarter: 2010Q4

REPORT INFORMATION
  Report Type: 
  Country: None (occurrence: None)
  Receive Date: 20101104
  Receipt Date: 20101020
  Transmission Date: 20110411
  Serious: Yes (Death, Other)
  Sender: FDA-Public Use
  Company Number: OPIR20100037

PATIENT
  Age: 19 Year
  Sex: Male
  Weight: 103.4201 kg

DRUGS (1)
  1. OPANA [Suspect]
     Indication: DRUG ABUSE
     Dosage: INTRA-NASAL
     Route: 045

REACTIONS (5)
  - DRUG ABUSE [None]
  - FOAMING AT MOUTH [None]
  - MOUTH HAEMORRHAGE [None]
  - SNORING [None]
  - WRONG TECHNIQUE IN DRUG USAGE PROCESS [None]
